FAERS Safety Report 7589144-3 (Version None)
Quarter: 2011Q3

REPORT INFORMATION
  Report Type: 
  Country: None (occurrence: None)
  Receive Date: 20110705
  Receipt Date: 20110519
  Transmission Date: 20111222
  Serious: No
  Sender: FDA-Public Use
  Company Number: US-BAYER-2011-044277

PATIENT
  Sex: Female
  Weight: 77 kg

DRUGS (5)
  1. TRIAMTERENE [Concomitant]
  2. PREMARIN [Concomitant]
  3. ZOCOR [Concomitant]
  4. ALEVE (CAPLET) [Suspect]
     Indication: ANALGESIC THERAPY
     Dosage: TWICE DAILY OR TWICE EVERY OTHER DAY
     Route: 048
     Dates: start: 20090101
  5. THYROID MEDICATION [Concomitant]

REACTIONS (1)
  - NO ADVERSE EVENT [None]
